FAERS Safety Report 17524952 (Version 2)
Quarter: 2020Q1

REPORT INFORMATION
  Report Type: Spontaneous
  Country: US (occurrence: US)
  Receive Date: 20200311
  Receipt Date: 20200319
  Transmission Date: 20200409
  Serious: No
  Sender: FDA-Public Use
  Company Number: US-AMGEN-USASP2020038190

PATIENT
  Age: 69 Year
  Sex: Male
  Weight: 99.77 kg

DRUGS (1)
  1. PROLIA [Suspect]
     Active Substance: DENOSUMAB
     Indication: OSTEOPOROSIS
     Dosage: 60 MILLIGRAM, Q6MO
     Route: 058
     Dates: start: 20200115

REACTIONS (3)
  - Pain [Unknown]
  - Cystitis [Unknown]
  - Rash [Unknown]

NARRATIVE: CASE EVENT DATE: 2020
